FAERS Safety Report 23639234 (Version 1)
Quarter: 2024Q1

REPORT INFORMATION
  Report Type: Spontaneous
  Country: US (occurrence: US)
  Receive Date: 20240316
  Receipt Date: 20240316
  Transmission Date: 20240410
  Serious: No
  Sender: FDA-Public Use
  Company Number: US-TEVA-VS-3142964

PATIENT
  Age: 68 Year
  Sex: Male

DRUGS (1)
  1. CLONAZEPAM [Suspect]
     Active Substance: CLONAZEPAM
     Indication: Neuralgia
     Dosage: ONSET - TAKING IT FOR 15 YEARS
     Route: 065

REACTIONS (3)
  - Therapeutic product effect decreased [Unknown]
  - Dizziness [Unknown]
  - Insomnia [Unknown]
